FAERS Safety Report 9290494 (Version 38)
Quarter: 2020Q2

REPORT INFORMATION
  Report Type: Report from Study
  Country: CA (occurrence: CA)
  Receive Date: 20130515
  Receipt Date: 20200610
  Transmission Date: 20200714
  Serious: Yes (Other)
  Sender: FDA-Public Use
  Company Number: CA-ROCHE-1190976

PATIENT
  Age: 30 Year
  Sex: Female
  Weight: 111 kg

DRUGS (11)
  1. ACTEMRA [Suspect]
     Active Substance: TOCILIZUMAB
     Route: 042
     Dates: start: 20151228, end: 20160301
  2. ACTEMRA [Suspect]
     Active Substance: TOCILIZUMAB
     Route: 042
     Dates: start: 20140703, end: 20150803
  3. ACTEMRA [Suspect]
     Active Substance: TOCILIZUMAB
     Route: 042
     Dates: start: 20150828, end: 20150923
  4. DEXILANT [Concomitant]
     Active Substance: DEXLANSOPRAZOLE
  5. RIVOTRIL [Concomitant]
     Active Substance: CLONAZEPAM
     Route: 048
  6. ACTEMRA [Suspect]
     Active Substance: TOCILIZUMAB
     Indication: JUVENILE IDIOPATHIC ARTHRITIS
     Route: 042
     Dates: start: 20121107, end: 20140604
  7. ACTEMRA [Suspect]
     Active Substance: TOCILIZUMAB
     Route: 042
     Dates: start: 20161021
  8. PREDNISONE. [Concomitant]
     Active Substance: PREDNISONE
  9. ACTEMRA [Suspect]
     Active Substance: TOCILIZUMAB
     Route: 042
     Dates: start: 20151020, end: 20151020
  10. ACTEMRA [Suspect]
     Active Substance: TOCILIZUMAB
     Route: 042
     Dates: start: 20151111, end: 20151208
  11. ACTEMRA [Suspect]
     Active Substance: TOCILIZUMAB
     Route: 042
     Dates: start: 20160321, end: 20161011

REACTIONS (28)
  - Pain in extremity [Unknown]
  - Tympanic membrane perforation [Unknown]
  - Weight increased [Not Recovered/Not Resolved]
  - Migraine [Not Recovered/Not Resolved]
  - Bronchitis [Not Recovered/Not Resolved]
  - Cyst [Unknown]
  - Arthropathy [Unknown]
  - Urinary tract infection [Unknown]
  - Bartholin^s cyst [Not Recovered/Not Resolved]
  - Oropharyngeal pain [Unknown]
  - Mobility decreased [Not Recovered/Not Resolved]
  - Urticaria [Unknown]
  - Clostridium difficile infection [Not Recovered/Not Resolved]
  - Clostridium difficile infection [Unknown]
  - Acne [Recovering/Resolving]
  - Sinusitis [Unknown]
  - Throat irritation [Unknown]
  - Wound [Recovering/Resolving]
  - Abdominal pain [Unknown]
  - Joint swelling [Recovering/Resolving]
  - Irritable bowel syndrome [Not Recovered/Not Resolved]
  - Weight increased [Not Recovered/Not Resolved]
  - Rheumatoid arthritis [Not Recovered/Not Resolved]
  - Anxiety [Unknown]
  - Nasopharyngitis [Recovering/Resolving]
  - Haematochezia [Recovered/Resolved]
  - Sinusitis [Not Recovered/Not Resolved]
  - Weight decreased [Unknown]

NARRATIVE: CASE EVENT DATE: 2013
